FAERS Safety Report 16047897 (Version 1)
Quarter: 2019Q1

REPORT INFORMATION
  Report Type: Report from Study
  Country: ES (occurrence: ES)
  Receive Date: 20190307
  Receipt Date: 20190307
  Transmission Date: 20190418
  Serious: Yes (Other)
  Sender: FDA-Public Use
  Company Number: ES-JNJFOC-20190303351

PATIENT
  Age: 72 Year
  Sex: Female

DRUGS (3)
  1. TRAMADOL HYDROCHLORIDE. [Suspect]
     Active Substance: TRAMADOL HYDROCHLORIDE
     Indication: PRODUCT USED FOR UNKNOWN INDICATION
     Route: 065
     Dates: start: 20190204
  2. TERIPARATIDE [Suspect]
     Active Substance: TERIPARATIDE
     Indication: OSTEOPOROSIS
     Route: 058
     Dates: start: 20181123
  3. IMUREL [Concomitant]
     Active Substance: AZATHIOPRINE SODIUM
     Indication: LIVER DISORDER
     Route: 065

REACTIONS (5)
  - Discomfort [Not Recovered/Not Resolved]
  - Injection site haematoma [Unknown]
  - Pulpitis dental [Recovered/Resolved]
  - Tooth abscess [Recovered/Resolved]
  - Dizziness [Not Recovered/Not Resolved]
